FAERS Safety Report 24614462 (Version 1)
Quarter: 2024Q4

REPORT INFORMATION
  Report Type: Report from Study
  Country: DE (occurrence: DE)
  Receive Date: 20241113
  Receipt Date: 20241113
  Transmission Date: 20250115
  Serious: Yes (Death)
  Sender: ABBVIE
  Company Number: DE-ABBVIE-6002665

PATIENT
  Age: 77 Year
  Sex: Female

DRUGS (1)
  1. FOSCARBIDOPA\FOSLEVODOPA [Suspect]
     Active Substance: FOSCARBIDOPA\FOSLEVODOPA
     Indication: Parkinson^s disease
     Dosage: SD: 0,60 ML; CRN: 0,33 ML/H; CR: 0,40 ML/H; CRH: 0,44 ML/H; ED: 0,15 ML
     Route: 058
     Dates: start: 20241016

REACTIONS (1)
  - Death [Fatal]

NARRATIVE: CASE EVENT DATE: 20241109
